FAERS Safety Report 20424588 (Version 1)
Quarter: 2022Q1

REPORT INFORMATION
  Report Type: Spontaneous
  Country: NL (occurrence: NL)
  Receive Date: 20220203
  Receipt Date: 20220203
  Transmission Date: 20220423
  Serious: Yes (Hospitalization)
  Sender: FDA-Public Use
  Company Number: NL-EXELIXIS-CABO-20035794

PATIENT
  Age: 69 Year
  Sex: Female
  Weight: 60 kg

DRUGS (8)
  1. CABOMETYX [Suspect]
     Active Substance: CABOZANTINIB S-MALATE
     Indication: Metastatic renal cell carcinoma
     Dosage: 60 MG, QD
     Dates: start: 20200716, end: 20201011
  2. DIGOXIN [Concomitant]
     Active Substance: DIGOXIN
     Dosage: TABLET, 0.125 MG
  3. CLEMASTINE [Concomitant]
     Active Substance: CLEMASTINE
     Dosage: TABLET, 1 MG
  4. APIXABAN [Concomitant]
     Active Substance: APIXABAN
     Dosage: TABLET, 2,5 MG
  5. NEXIUM [Concomitant]
     Active Substance: ESOMEPRAZOLE MAGNESIUM
     Dosage: TABLET, 20 MG
  6. BEZAFIBRATE [Concomitant]
     Active Substance: BEZAFIBRATE
     Dosage: TABLET, 400 MG
  7. FLECAINIDE [Concomitant]
     Active Substance: FLECAINIDE
     Dosage: CAPSULE, 100 MG
  8. LEVOTHYROXINE SODIUM [Concomitant]
     Active Substance: LEVOTHYROXINE SODIUM
     Dosage: 137.5 MICROGRAM, TABLET

REACTIONS (1)
  - Diarrhoea [Recovered/Resolved]

NARRATIVE: CASE EVENT DATE: 20201011
